FAERS Safety Report 15682126 (Version 1)
Quarter: 2018Q4

REPORT INFORMATION
  Report Type: Spontaneous
  Country: US (occurrence: US)
  Receive Date: 20181203
  Receipt Date: 20181203
  Transmission Date: 20190205
  Serious: Yes (Other)
  Sender: FDA-Public Use
  Company Number: US-ELI_LILLY_AND_COMPANY-US201811010688

PATIENT
  Age: 63 Year
  Sex: Male

DRUGS (2)
  1. LEVEMIR [Concomitant]
     Active Substance: INSULIN DETEMIR
     Indication: PRODUCT USED FOR UNKNOWN INDICATION
  2. HUMALOG MIX75/25 [Suspect]
     Active Substance: INSULIN LISPRO
     Indication: TYPE 2 DIABETES MELLITUS
     Dosage: 50 U, TID
     Route: 065

REACTIONS (9)
  - Aneurysm [Unknown]
  - Hypoaesthesia [Unknown]
  - Arthropathy [Unknown]
  - Hypoacusis [Unknown]
  - Road traffic accident [Unknown]
  - Visual impairment [Unknown]
  - Myocardial infarction [Unknown]
  - Peripheral artery aneurysm [Unknown]
  - Hypoglycaemic seizure [Unknown]

NARRATIVE: CASE EVENT DATE: 20101115
